FAERS Safety Report 20618136 (Version 5)
Quarter: 2022Q2

REPORT INFORMATION
  Report Type: Spontaneous
  Country: US (occurrence: US)
  Receive Date: 20220321
  Receipt Date: 20220504
  Transmission Date: 20220720
  Serious: No
  Sender: FDA-Public Use
  Company Number: US-PFIZER INC-202200433040

PATIENT
  Age: 64 Year
  Sex: Male
  Weight: 86.18 kg

DRUGS (7)
  1. PAXLOVID [Suspect]
     Active Substance: NIRMATRELVIR\RITONAVIR
     Indication: COVID-19 treatment
     Dosage: 3 PILL REGIMEN THAT HE TAKES IN THE MORNING AND IN THE EVENING AS PRESCRIBED
     Dates: start: 20220315
  2. PAXLOVID [Suspect]
     Active Substance: NIRMATRELVIR\RITONAVIR
     Dosage: 4 MEDICINES INSTEAD OF 2
  3. DICLOFENAC [Suspect]
     Active Substance: DICLOFENAC
     Indication: Neuralgia
     Dosage: 75 MG, 2X/DAY
     Dates: start: 202202
  4. FLOVENT [Concomitant]
     Active Substance: FLUTICASONE PROPIONATE
     Dosage: MORNING AND EVENING
  5. ZINC [Concomitant]
     Active Substance: ZINC
     Indication: COVID-19
     Dosage: TAKES 1 A DAY, OR TAKES 1 TWICE A DAY
     Dates: start: 20220312
  6. ALBUTEROL SULFATE [Concomitant]
     Active Substance: ALBUTEROL SULFATE
     Indication: Nasopharyngitis
     Dosage: MORNING, EVENING, AND MID DAY
  7. FLUTICASONE [Concomitant]
     Active Substance: FLUTICASONE
     Dosage: UNK

REACTIONS (2)
  - Dysgeusia [Not Recovered/Not Resolved]
  - Product taste abnormal [Not Recovered/Not Resolved]

NARRATIVE: CASE EVENT DATE: 20220316
